FAERS Safety Report 19949462 (Version 1)
Quarter: 2021Q4

REPORT INFORMATION
  Report Type: Spontaneous
  Country: US (occurrence: US)
  Receive Date: 20211012
  Receipt Date: 20211012
  Transmission Date: 20220303
  Serious: Yes (unspecified)
  Sender: FDA-Public Use
  Company Number: None

PATIENT
  Age: 65 Year
  Sex: Male

DRUGS (3)
  1. VANCOMYCIN [Suspect]
     Active Substance: VANCOMYCIN
     Indication: Medical device site joint infection
     Route: 042
     Dates: start: 20210922, end: 20210923
  2. VANCOMYCIN [Suspect]
     Active Substance: VANCOMYCIN
     Indication: Medical device site joint infection
     Route: 042
     Dates: start: 20210922, end: 20210923
  3. CEFEPIME [Concomitant]
     Active Substance: CEFEPIME HYDROCHLORIDE
     Dates: start: 20210922, end: 20210923

REACTIONS (3)
  - Rash pruritic [None]
  - Rash [None]
  - Therapy interrupted [None]

NARRATIVE: CASE EVENT DATE: 20210923
